FAERS Safety Report 8489144-5 (Version None)
Quarter: 2012Q3

REPORT INFORMATION
  Report Type: 
  Country: None (occurrence: None)
  Receive Date: 20120705
  Receipt Date: 20120702
  Transmission Date: 20120928
  Serious: Yes (Hospitalization)
  Sender: FDA-Public Use
  Company Number: PHHY2009AU50566

PATIENT
  Sex: Female

DRUGS (1)
  1. CLOZARIL [Suspect]
     Dosage: 700 MG, DAILY
     Route: 048
     Dates: start: 19940607

REACTIONS (6)
  - HALLUCINATION [None]
  - PARANOIA [None]
  - TOOTH ABSCESS [None]
  - CONDITION AGGRAVATED [None]
  - SCHIZOPHRENIA [None]
  - SCHIZOPHRENIA, PARANOID TYPE [None]
